FAERS Safety Report 15717428 (Version 1)
Quarter: 2018Q4

REPORT INFORMATION
  Report Type: Spontaneous
  Country: JP (occurrence: JP)
  Receive Date: 20181213
  Receipt Date: 20181213
  Transmission Date: 20190205
  Serious: Yes (Hospitalization)
  Sender: FDA-Public Use
  Company Number: JP-BAYER-2018-226360

PATIENT
  Age: 73 Year
  Sex: Male

DRUGS (11)
  1. WARFARIN [Interacting]
     Active Substance: WARFARIN
     Indication: VENA CAVA FILTER INSERTION
  2. HEPARIN [Interacting]
     Active Substance: HEPARIN SODIUM
     Indication: DEEP VEIN THROMBOSIS
  3. HEPARIN [Interacting]
     Active Substance: HEPARIN SODIUM
     Indication: VENA CAVA FILTER INSERTION
  4. WARFARIN [Interacting]
     Active Substance: WARFARIN
     Indication: DEEP VEIN THROMBOSIS
  5. BAYASPIRIN 100 MG [Suspect]
     Active Substance: ASPIRIN
     Indication: CEREBRAL INFARCTION
     Dosage: 100 MG
     Route: 048
  6. HEPARIN [Interacting]
     Active Substance: HEPARIN SODIUM
     Indication: ANTICOAGULANT THERAPY
     Dosage: 10000 U
     Route: 042
  7. BAYASPIRIN 100 MG [Interacting]
     Active Substance: ASPIRIN
     Indication: CEREBRAL INFARCTION
     Dosage: UNK
     Route: 048
  8. EDOXABAN [Interacting]
     Active Substance: EDOXABAN TOSYLATE
     Indication: DEEP VEIN THROMBOSIS
     Dosage: UNK
     Route: 048
  9. WARFARIN [Interacting]
     Active Substance: WARFARIN
     Indication: ANTICOAGULANT THERAPY
     Dosage: 2 MG
     Route: 048
  10. EDOXABAN [Interacting]
     Active Substance: EDOXABAN TOSYLATE
     Indication: ANTICOAGULANT THERAPY
     Dosage: 30 MG
     Route: 048
  11. EDOXABAN [Interacting]
     Active Substance: EDOXABAN TOSYLATE
     Indication: VENA CAVA FILTER INSERTION

REACTIONS (6)
  - Drug interaction [None]
  - Cholecystitis acute [Recovering/Resolving]
  - Gallbladder rupture [None]
  - Labelled drug-drug interaction medication error [None]
  - Peritoneal haemorrhage [Recovering/Resolving]
  - Haemobilia [Recovering/Resolving]
